FAERS Safety Report 20940569 (Version 1)
Quarter: 2022Q2

REPORT INFORMATION
  Report Type: Report from Study
  Country: US (occurrence: US)
  Receive Date: 20220609
  Receipt Date: 20220609
  Transmission Date: 20220721
  Serious: Yes (Death, Other)
  Sender: FDA-Public Use
  Company Number: US-ABBVIE-22P-163-4376735-00

PATIENT
  Age: 67 Year
  Sex: Female
  Weight: 58.1 kg

DRUGS (3)
  1. IBRUTINIB [Suspect]
     Active Substance: IBRUTINIB
     Indication: Chronic lymphocytic leukaemia
     Dosage: DAYS 1-28 (CYCLE = 28 DAYS)
     Route: 048
     Dates: start: 20200225, end: 20200818
  2. VENETOCLAX [Suspect]
     Active Substance: VENETOCLAX
     Indication: Chronic lymphocytic leukaemia
     Dosage: DAYS 1-28 (CYCLE = 28 DAYS)
     Route: 048
     Dates: start: 20200225, end: 20200818
  3. OBINUTUZUMAB [Concomitant]
     Active Substance: OBINUTUZUMAB
     Indication: Chronic lymphocytic leukaemia
     Dosage: DAY 1, CYCLES 2-6 (CYCLE = 28 DAYS)
     Route: 042
     Dates: start: 20200225, end: 20200714

REACTIONS (1)
  - Platelet count decreased [Fatal]

NARRATIVE: CASE EVENT DATE: 20200818
